FAERS Safety Report 14461463 (Version 2)
Quarter: 2020Q3

REPORT INFORMATION
  Report Type: Spontaneous
  Country: JP (occurrence: JP)
  Receive Date: 20180130
  Receipt Date: 20180207
  Transmission Date: 20201104
  Serious: Yes (Hospitalization)
  Sender: FDA-Public Use
  Company Number: JP-CELGENEUS-JPN-20180108389

PATIENT
  Age: 44 Year
  Sex: Female

DRUGS (16)
  1. MEDI4736 (DURVALUMAB) [Suspect]
     Active Substance: DURVALUMAB
     Indication: NEOPLASM
     Dosage: 1.5G
     Route: 042
     Dates: start: 20171221, end: 20171221
  2. ESOMEPRAZOLE SODIUM. [Concomitant]
     Active Substance: ESOMEPRAZOLE SODIUM
     Indication: GASTRITIS
     Dosage: 10 MILLIGRAM
     Route: 048
  3. METOCLOPRAMIDE. [Concomitant]
     Active Substance: METOCLOPRAMIDE
     Indication: NAUSEA
     Dosage: 5.0MG
     Route: 048
  4. TREMELIMUMAB. [Suspect]
     Active Substance: TREMELIMUMAB
     Indication: NEOPLASM
     Dosage: 75 MILLIGRAM
     Route: 042
     Dates: start: 20171221, end: 20171221
  5. ABRAXANE [Suspect]
     Active Substance: PACLITAXEL
     Dosage: 173.0 MG/M2
     Route: 042
     Dates: start: 20171227, end: 20171227
  6. GEMCITABINE. [Suspect]
     Active Substance: GEMCITABINE
     Dosage: 1383.0MG/M2
     Route: 042
     Dates: start: 20171227, end: 20171227
  7. SENNOSIDE A+B CALCIUM [Concomitant]
     Active Substance: SENNOSIDES A AND B
     Indication: CONSTIPATION
     Dosage: 12.0MG
     Route: 048
  8. RED BLOOD CELLS, LEUCOCYTE DEPLETED [Concomitant]
     Active Substance: HUMAN RED BLOOD CELL
     Indication: ANAEMIA
     Dosage: 400.0ML
     Route: 042
     Dates: start: 20180104, end: 20180104
  9. OXYCODONE HYDROCHLORIDE. [Concomitant]
     Active Substance: OXYCODONE HYDROCHLORIDE
     Indication: CANCER PAIN
     Dosage: 20.0MG
     Route: 048
  10. GEMCITABINE. [Suspect]
     Active Substance: GEMCITABINE
     Indication: NEOPLASM
     Dosage: 1383.0 MG/M2
     Route: 042
     Dates: start: 20171221, end: 20171221
  11. SODIUM PICOSULFATE [Concomitant]
     Active Substance: SODIUM PICOSULFATE
     Indication: CONSTIPATION
     Dosage: AS REQUIRED
     Route: 048
  12. ABRAXANE [Suspect]
     Active Substance: PACLITAXEL
     Indication: NEOPLASM
     Dosage: 173.0 MG/M2
     Route: 042
     Dates: start: 20171221, end: 20171221
  13. OXYCODONE HYDROCHLORIDE. [Concomitant]
     Active Substance: OXYCODONE HYDROCHLORIDE
     Indication: CANCER PAIN
     Dosage: 20.0MG
     Route: 048
  14. LOXOPROFEN [Concomitant]
     Active Substance: LOXOPROFEN
     Indication: CANCER PAIN
     Dosage: 60.0MG
     Route: 048
  15. MAGNESIUM OXIDE. [Concomitant]
     Active Substance: MAGNESIUM OXIDE
     Indication: CONSTIPATION
     Dosage: 500.0MG
     Route: 048
  16. ALCLOMETASONE DIPROPIONATE. [Concomitant]
     Active Substance: ALCLOMETASONE DIPROPIONATE
     Indication: ECZEMA
     Route: 061
     Dates: start: 20180104

REACTIONS (1)
  - Aneurysm ruptured [Recovered/Resolved]

NARRATIVE: CASE EVENT DATE: 20180117
